FAERS Safety Report 7720973-9 (Version None)
Quarter: 2011Q3

REPORT INFORMATION
  Report Type: 
  Country: None (occurrence: None)
  Receive Date: 20110830
  Receipt Date: 20110830
  Transmission Date: 20111222
  Serious: Yes (Other)
  Sender: FDA-Public Use
  Company Number: None

PATIENT
  Age: 50 Year
  Sex: Female
  Weight: 69.7179 kg

DRUGS (2)
  1. NUCYNTA [Suspect]
     Indication: BACK PAIN
     Dosage: 50MG EVERY 6 HRS.
     Dates: start: 20110618, end: 20110729
  2. NUCYNTA [Suspect]
     Indication: PAIN IN EXTREMITY
     Dosage: 50MG EVERY 6 HRS.
     Dates: start: 20110618, end: 20110729

REACTIONS (3)
  - PAIN IN EXTREMITY [None]
  - HEADACHE [None]
  - CHEST DISCOMFORT [None]
